FAERS Safety Report 24941312 (Version 1)
Quarter: 2025Q1

REPORT INFORMATION
  Report Type: Spontaneous
  Country: US (occurrence: None)
  Receive Date: 20250206
  Receipt Date: 20250206
  Transmission Date: 20250409
  Serious: Yes (Hospitalization)
  Sender: FDA-CTU
  Company Number: None

PATIENT
  Sex: Female

DRUGS (1)
  1. TEZSPIRE [Suspect]
     Active Substance: TEZEPELUMAB-EKKO
     Indication: Asthma
     Dosage: FREQUENCY : MONTHLY;?FREQ: INJECT 210 MG UNDER THE SKIN (SUBCUTANEOUS INJECTION) ONCE EVERY FOUR WEEKS AS DIRECTED BY ?PHYSICIAN?
     Route: 058
     Dates: start: 20240807

REACTIONS (1)
  - Hospitalisation [None]
